FAERS Safety Report 5572965-6 (Version None)
Quarter: 2007Q4

REPORT INFORMATION
  Report Type: 
  Country: None (occurrence: None)
  Receive Date: 20071219
  Receipt Date: 20071219
  Transmission Date: 20080405
  Serious: No
  Sender: FDA-Public Use
  Company Number: None

PATIENT
  Age: 9 Year
  Sex: Female
  Weight: 45.3597 kg

DRUGS (4)
  1. BUPROPION HCL [Suspect]
     Dosage: 37.5MG TID PO
     Route: 048
  2. DEPAKOTE [Concomitant]
  3. STRATTERA [Concomitant]
  4. MIRALAX [Concomitant]

REACTIONS (1)
  - RASH [None]
